FAERS Safety Report 9513871 (Version 1)
Quarter: 2013Q1

REPORT INFORMATION
  Report Type: Spontaneous
  Country: US (occurrence: None)
  Receive Date: 20130305
  Receipt Date: 20130305
  Transmission Date: 20140127
  Serious: Yes (Death, Disabling)
  Sender: FDA-Public Use
  Company Number: 163-21880-12102442

PATIENT
  Age: 78 Year
  Sex: Male
  Weight: 185 kg

DRUGS (1)
  1. REVLIMID [Suspect]
     Indication: PLASMA CELL MYELOMA
     Dosage: 25 MG, 1 IN 1 D, PO
     Route: 048
     Dates: start: 200807

REACTIONS (5)
  - Pneumonia [None]
  - Neuropathy peripheral [None]
  - Back pain [None]
  - Malaise [None]
  - Drug ineffective [None]
